FAERS Safety Report 6274602-4 (Version None)
Quarter: 2009Q3

REPORT INFORMATION
  Report Type: 
  Country: None (occurrence: None)
  Receive Date: 20090720
  Receipt Date: 20081224
  Transmission Date: 20100115
  Serious: Yes (Other)
  Sender: FDA-Public Use
  Company Number: JP-GENENTECH-287014

PATIENT
  Age: 70 Year
  Sex: Female

DRUGS (4)
  1. AVASTIN [Suspect]
     Indication: RECTAL CANCER RECURRENT
     Dosage: UNK
     Route: 041
     Dates: start: 20080101
  2. FLUOROURACIL [Suspect]
     Indication: RECTAL CANCER RECURRENT
     Dosage: UNK
     Route: 040
     Dates: start: 20080101
  3. IRINOTECAN HCL [Concomitant]
     Indication: RECTAL CANCER RECURRENT
     Dosage: UNK
     Route: 041
     Dates: start: 20080101
  4. CALCIUM LEVOFOLINATE [Concomitant]
     Indication: RECTAL CANCER RECURRENT
     Dosage: UNK
     Route: 041
     Dates: start: 20080101

REACTIONS (2)
  - ALTERED STATE OF CONSCIOUSNESS [None]
  - HYPERAMMONAEMIA [None]
